FAERS Safety Report 8435169-5 (Version None)
Quarter: 2012Q2

REPORT INFORMATION
  Report Type: 
  Country: None (occurrence: None)
  Receive Date: 20120614
  Receipt Date: 20120613
  Transmission Date: 20120825
  Serious: Yes (Death)
  Sender: FDA-Public Use
  Company Number: US-PFIZER INC-2011US-48254

PATIENT
  Age: 73 Year

DRUGS (3)
  1. METFORMIN HCL [Suspect]
     Dosage: UNK
     Route: 048
  2. DIGOXIN [Suspect]
     Dosage: UNK
     Route: 048
  3. VERAPAMIL HCL [Suspect]
     Dosage: UNK
     Route: 048

REACTIONS (1)
  - MEDICATION ERROR [None]
